FAERS Safety Report 13253825 (Version 1)
Quarter: 2017Q1

REPORT INFORMATION
  Report Type: Spontaneous
  Country: US (occurrence: US)
  Receive Date: 20170220
  Receipt Date: 20170220
  Transmission Date: 20170428
  Serious: No
  Sender: FDA-Public Use
  Company Number: US-LUNDBECK-DKLU2023677

PATIENT
  Age: 23 Year
  Sex: Female

DRUGS (2)
  1. NORTHERA [Suspect]
     Active Substance: DROXIDOPA
     Indication: AUTONOMIC FAILURE SYNDROME
     Dosage: TITRATION COMPLETE
     Route: 065
     Dates: start: 20161108, end: 20161203
  2. NORTHERA [Suspect]
     Active Substance: DROXIDOPA
     Indication: NEUROPATHY PERIPHERAL

REACTIONS (1)
  - Drug ineffective [Unknown]

NARRATIVE: CASE EVENT DATE: 20161203
